FAERS Safety Report 7700611-1 (Version None)
Quarter: 2011Q3

REPORT INFORMATION
  Report Type: 
  Country: None (occurrence: None)
  Receive Date: 20110822
  Receipt Date: 20110822
  Transmission Date: 20111222
  Serious: Yes (Hospitalization)
  Sender: FDA-Public Use
  Company Number: None

PATIENT
  Age: 88 Year
  Sex: Male
  Weight: 100 kg

DRUGS (1)
  1. PRADAXA [Suspect]
     Indication: ATRIAL FIBRILLATION
     Dosage: 150MG
     Route: 048
     Dates: start: 20110615, end: 20110815

REACTIONS (4)
  - ASTHENIA [None]
  - CONFUSIONAL STATE [None]
  - ATRIAL FIBRILLATION [None]
  - CEREBRAL HAEMORRHAGE [None]
